FAERS Safety Report 4923657-5 (Version None)
Quarter: 2006Q1

REPORT INFORMATION
  Report Type: 
  Country: None (occurrence: None)
  Receive Date: 20060227
  Receipt Date: 20030605
  Transmission Date: 20060701
  Serious: Yes (Disabling)
  Sender: FDA-Public Use
  Company Number: US-MERCK-0306USA00829

PATIENT
  Age: 39 Year
  Sex: Female
  Weight: 108 kg

DRUGS (14)
  1. VIOXX [Suspect]
     Indication: TENDONITIS
     Route: 048
     Dates: start: 19991001, end: 20001201
  2. VIOXX [Suspect]
     Route: 048
     Dates: start: 20000901
  3. VIOXX [Suspect]
     Route: 048
     Dates: start: 20000922
  4. VIOXX [Suspect]
     Route: 048
     Dates: start: 20000101
  5. VIOXX [Suspect]
     Route: 048
     Dates: start: 20010403
  6. VIOXX [Suspect]
     Indication: ROTATOR CUFF SYNDROME
     Route: 048
     Dates: start: 19991001, end: 20001201
  7. VIOXX [Suspect]
     Route: 048
     Dates: start: 20000901
  8. VIOXX [Suspect]
     Route: 048
     Dates: start: 20000922
  9. VIOXX [Suspect]
     Route: 048
     Dates: start: 20000101
  10. VIOXX [Suspect]
     Route: 048
     Dates: start: 20010403
  11. DARVOCET-N 50 [Concomitant]
     Route: 065
  12. SKELAXIN [Concomitant]
     Route: 065
     Dates: start: 20000922
  13. FIORICET TABLETS [Concomitant]
     Route: 065
  14. HYDROCODONE BITARTRATE [Concomitant]
     Route: 065

REACTIONS (14)
  - BACK PAIN [None]
  - CARPAL TUNNEL SYNDROME [None]
  - CHEST PAIN [None]
  - DYSPNOEA [None]
  - HYPERTENSION [None]
  - INSOMNIA [None]
  - LIMB INJURY [None]
  - MUSCLE SPASMS [None]
  - MUSCLE STRAIN [None]
  - NAUSEA [None]
  - NECK PAIN [None]
  - PALPITATIONS [None]
  - ROTATOR CUFF SYNDROME [None]
  - TENDON DISORDER [None]
